FAERS Safety Report 11564592 (Version 1)
Quarter: 2015Q3

REPORT INFORMATION
  Report Type: Spontaneous
  Country: ES (occurrence: ES)
  Receive Date: 20150928
  Receipt Date: 20150928
  Transmission Date: 20151125
  Serious: Yes (Death, Other)
  Sender: FDA-Public Use
  Company Number: ES-PFIZER INC-2015310173

PATIENT
  Weight: .64 kg

DRUGS (4)
  1. MAGNESIUM SULPHATE /07507001/ [Suspect]
     Active Substance: MAGNESIUM SULFATE
     Indication: PRE-ECLAMPSIA
     Dosage: UNK
  2. OXYGEN. [Concomitant]
     Active Substance: OXYGEN
     Dosage: UNK
  3. IBUPROFEN. [Suspect]
     Active Substance: IBUPROFEN
     Indication: PATENT DUCTUS ARTERIOSUS
     Dosage: 10 MG/KG, SINGLE
     Route: 042
  4. IBUPROFEN. [Suspect]
     Active Substance: IBUPROFEN
     Dosage: 5 MG/KG, SINGLE
     Route: 042

REACTIONS (6)
  - Pulmonary hypertension [Fatal]
  - Hypotension [Fatal]
  - Respiratory acidosis [Unknown]
  - Metabolic acidosis [Unknown]
  - Oliguria [Unknown]
  - Maternal exposure during pregnancy [Unknown]
